FAERS Safety Report 7342841-7 (Version None)
Quarter: 2011Q1

REPORT INFORMATION
  Report Type: 
  Country: None (occurrence: None)
  Receive Date: 20110302
  Receipt Date: 20110217
  Transmission Date: 20110831
  Serious: Yes (Life-Threatening)
  Sender: FDA-Public Use
  Company Number: 2010-4206

PATIENT
  Age: 2 Year
  Sex: Female
  Weight: 10 kg

DRUGS (10)
  1. MULTIVITAMIN [Concomitant]
  2. INSULIN (INSULIN) [Concomitant]
  3. BACTRIM [Concomitant]
  4. INCRELEX [Suspect]
     Indication: AUTOSOMAL CHROMOSOME ANOMALY
     Dosage: (1200 UG/KG/DAY VIA PUMP (1200 UG/KG, CONTINUOUS VIA PUMP) SUBCUTANEOUS) (80 UG/KG (GRADUALLY INCREA
     Route: 058
     Dates: start: 20090427, end: 20100411
  5. INCRELEX [Suspect]
     Indication: AUTOSOMAL CHROMOSOME ANOMALY
     Dosage: (1200 UG/KG/DAY VIA PUMP (1200 UG/KG, CONTINUOUS VIA PUMP) SUBCUTANEOUS) (80 UG/KG (GRADUALLY INCREA
     Route: 058
     Dates: start: 20100412, end: 20100916
  6. LACTULOSE [Concomitant]
  7. RIOMET (METFORMIN) [Concomitant]
  8. PREVACID [Concomitant]
  9. UREA CREAM (ALL OTHER THERAPEUTIC PRODUCTS) [Concomitant]
  10. MIRALAX [Concomitant]

REACTIONS (10)
  - INSULIN RESISTANCE [None]
  - HYPOGLYCAEMIA [None]
  - OVARIAN ADENOMA [None]
  - OVARIAN GRANULOSA-THECA CELL TUMOUR [None]
  - HYPERGLYCAEMIA [None]
  - CONDITION AGGRAVATED [None]
  - OVARIAN TORSION [None]
  - ACUTE RESPIRATORY DISTRESS SYNDROME [None]
  - ABDOMINAL DISTENSION [None]
  - BLOOD KETONE BODY PRESENT [None]
